FAERS Safety Report 4755822-4 (Version None)
Quarter: 2005Q3

REPORT INFORMATION
  Report Type: 
  Country: None (occurrence: None)
  Receive Date: 20050830
  Receipt Date: 20050103
  Transmission Date: 20060218
  Serious: No
  Sender: FDA-Public Use
  Company Number: US-BRISTOL-MYERS SQUIBB COMPANY-12812145

PATIENT
  Age: 50 Year
  Sex: Female
  Weight: 94 kg

DRUGS (5)
  1. ERBITUX [Suspect]
     Indication: COLORECTAL CANCER METASTATIC
     Dosage: INTERRUPTED ON 21-OCT-2004 DUE TO EVENTS.  DOSAGE DECREASED TO 300 MG  AND RESTARTED ON 11-FEB-2005.
     Route: 042
     Dates: start: 20041015, end: 20041015
  2. BENADRYL [Concomitant]
     Indication: PREMEDICATION
     Route: 042
     Dates: start: 20041015, end: 20041015
  3. TAGAMET [Concomitant]
     Indication: PREMEDICATION
     Dates: start: 20041015, end: 20041015
  4. MINOCIN [Concomitant]
     Dates: start: 20041015
  5. SOLU-MEDROL [Concomitant]

REACTIONS (5)
  - DRY SKIN [None]
  - RASH [None]
  - STOMATITIS [None]
  - SWELLING FACE [None]
  - SWOLLEN TONGUE [None]
